FAERS Safety Report 12128194 (Version 1)
Quarter: 2016Q1

REPORT INFORMATION
  Report Type: Spontaneous
  Country: US (occurrence: US)
  Receive Date: 20160229
  Receipt Date: 20160229
  Transmission Date: 20160526
  Serious: Yes (Hospitalization)
  Sender: FDA-Public Use
  Company Number: US-CELGENEUS-USA-2016025676

PATIENT
  Age: 78 Year
  Sex: Female
  Weight: 62.7 kg

DRUGS (6)
  1. GEMCITABINE [Suspect]
     Active Substance: GEMCITABINE\GEMCITABINE HYDROCHLORIDE
     Route: 065
     Dates: start: 20160126, end: 20160209
  2. ABRAXANE [Suspect]
     Active Substance: PACLITAXEL
     Indication: PANCREATIC CARCINOMA METASTATIC
     Route: 050
     Dates: start: 20151013
  3. M402 (NECUPARANIB) [Suspect]
     Active Substance: NECUPARANIB
     Route: 065
     Dates: start: 20160126
  4. ABRAXANE [Suspect]
     Active Substance: PACLITAXEL
     Route: 050
     Dates: start: 20160126, end: 20160209
  5. GEMCITABINE [Suspect]
     Active Substance: GEMCITABINE\GEMCITABINE HYDROCHLORIDE
     Indication: PANCREATIC CARCINOMA METASTATIC
     Route: 065
     Dates: start: 20151013
  6. M402 (NECUPARANIB) [Suspect]
     Active Substance: NECUPARANIB
     Indication: PANCREATIC CARCINOMA METASTATIC
     Route: 065
     Dates: start: 20151013

REACTIONS (1)
  - Dyspnoea [Recovering/Resolving]

NARRATIVE: CASE EVENT DATE: 20160219
